FAERS Safety Report 9823671 (Version 1)
Quarter: 2014Q1

REPORT INFORMATION
  Report Type: Report from Study
  Country: BR (occurrence: BR)
  Receive Date: 20140116
  Receipt Date: 20140116
  Transmission Date: 20141002
  Serious: Yes (Other)
  Sender: FDA-Public Use
  Company Number: PHHY2014BR003536

PATIENT
  Sex: Male
  Weight: 82 kg

DRUGS (3)
  1. DIOVAN [Suspect]
     Indication: HYPERTENSION
     Dosage: 80 MG, QD (ONCE IN THE MORNING)
     Route: 048
     Dates: start: 2001, end: 2006
  2. DIOVAN AMLO FIX [Suspect]
     Indication: HYPERTENSION
     Dosage: 1 DF (160 MG VALS, 5 MG AMLO), QD (ONCE IN THE MORNING)
     Route: 048
     Dates: start: 2006
  3. NEBIDO [Concomitant]
     Indication: HORMONE REPLACEMENT THERAPY
     Dosage: 1000 MG, UNK (EVERY 3 MONTHS)

REACTIONS (5)
  - Retinal disorder [Recovered/Resolved]
  - Visual acuity reduced [Recovered/Resolved]
  - Visual impairment [Recovered/Resolved]
  - Glaucoma [Recovered/Resolved]
  - Cataract [Recovered/Resolved]
